FAERS Safety Report 8487174-0 (Version None)
Quarter: 2012Q3

REPORT INFORMATION
  Report Type: 
  Country: None (occurrence: None)
  Receive Date: 20120704
  Receipt Date: 20120626
  Transmission Date: 20120928
  Serious: Yes (Hospitalization, Other)
  Sender: FDA-Public Use
  Company Number: FI-ROCHE-1082055

PATIENT
  Sex: Female

DRUGS (6)
  1. COPEGUS [Suspect]
     Indication: HEPATITIS C
     Route: 048
     Dates: start: 20120207, end: 20120603
  2. KEFEXIN [Concomitant]
     Route: 048
  3. NEORECORMON [Concomitant]
     Dosage: 3000 UNITS
     Route: 058
  4. PEGASYS [Suspect]
     Indication: HEPATITIS C
     Route: 058
     Dates: start: 20120207, end: 20120603
  5. ZINACEF [Concomitant]
  6. INCIVO [Suspect]
     Indication: HEPATITIS C
     Route: 048
     Dates: start: 20120313, end: 20120522

REACTIONS (7)
  - DERMATITIS EXFOLIATIVE [None]
  - THROMBOCYTOPENIA [None]
  - ANAEMIA [None]
  - SKIN REACTION [None]
  - PYREXIA [None]
  - LEUKOPENIA [None]
  - NEUTROPENIA [None]
